FAERS Safety Report 5729235-2 (Version None)
Quarter: 2008Q2

REPORT INFORMATION
  Report Type: 
  Country: None (occurrence: None)
  Receive Date: 20080430
  Receipt Date: 20071228
  Transmission Date: 20081010
  Serious: No
  Sender: FDA-Public Use
  Company Number: 2007PV033887

PATIENT
  Age: 58 Year
  Sex: Male
  Weight: 136.0791 kg

DRUGS (10)
  1. SYMLIN [Suspect]
     Indication: TYPE 2 DIABETES MELLITUS
     Dosage: 60 MCG;BID;SC
     Route: 058
     Dates: start: 20071211
  2. HUMALOG MIX 75/25 [Concomitant]
  3. JANUVIA [Concomitant]
  4. METFORMIN [Concomitant]
  5. LOVASTATIN [Concomitant]
  6. POTASSIUM CHLORIDE [Concomitant]
  7. TRICOR [Concomitant]
  8. LISINOP [Concomitant]
  9. CARTIA XT [Concomitant]
  10. TAMSULOSIN HCL [Concomitant]

REACTIONS (2)
  - BALANITIS CANDIDA [None]
  - SEMEN VOLUME DECREASED [None]
